FAERS Safety Report 7368798-0 (Version None)
Quarter: 2011Q1

REPORT INFORMATION
  Report Type: 
  Country: None (occurrence: None)
  Receive Date: 20110304
  Receipt Date: 20101029
  Transmission Date: 20110831
  Serious: Yes (Hospitalization)
  Sender: FDA-Public Use
  Company Number: CLOF-1000551

PATIENT
  Age: 70 Year
  Sex: Male
  Weight: 89.2 kg

DRUGS (2)
  1. CYTARABINE [Suspect]
     Indication: ACUTE MYELOID LEUKAEMIA
     Dosage: 1G/M2, QX5, 1 G/M2,X4 DAYS,  INTRAVENOUS
     Route: 042
     Dates: start: 20090602, end: 20090605
  2. CYTARABINE [Suspect]
     Indication: ACUTE MYELOID LEUKAEMIA
     Dosage: 1G/M2, QX5, 1 G/M2,X4 DAYS,  INTRAVENOUS
     Route: 042
     Dates: start: 20090417, end: 20090421

REACTIONS (7)
  - BLOOD PRESSURE FLUCTUATION [None]
  - HYPOXIA [None]
  - BLOOD COUNT ABNORMAL [None]
  - CHILLS [None]
  - PYREXIA [None]
  - LUNG INFILTRATION [None]
  - BACTERIAL TEST POSITIVE [None]
